FAERS Safety Report 14113240 (Version 1)
Quarter: 2017Q4

REPORT INFORMATION
  Report Type: Spontaneous
  Country: US (occurrence: None)
  Receive Date: 20171021
  Receipt Date: 20171021
  Transmission Date: 20180321
  Serious: Yes (Hospitalization)
  Sender: FDA-Public Use
  Company Number: None

PATIENT
  Age: 69 Year
  Sex: Female
  Weight: 71.4 kg

DRUGS (2)
  1. CARBOPLATIN. [Suspect]
     Active Substance: CARBOPLATIN
     Dates: end: 20170927
  2. GEMCITABINE HYDROCHLORIDE. [Suspect]
     Active Substance: GEMCITABINE HYDROCHLORIDE
     Dates: end: 20171004

REACTIONS (21)
  - Productive cough [None]
  - Anxiety [None]
  - Frustration tolerance decreased [None]
  - Bronchitis [None]
  - Atelectasis [None]
  - Fatigue [None]
  - Bedridden [None]
  - Loss of personal independence in daily activities [None]
  - Pulmonary mass [None]
  - Anaemia [None]
  - Dizziness postural [None]
  - Affective disorder [None]
  - Upper-airway cough syndrome [None]
  - Asthenia [None]
  - Condition aggravated [None]
  - Nausea [None]
  - Dyspnoea exertional [None]
  - Multiple allergies [None]
  - Decreased activity [None]
  - Platelet count decreased [None]
  - Haemoglobin decreased [None]

NARRATIVE: CASE EVENT DATE: 20171012
